FAERS Safety Report 19202061 (Version 1)
Quarter: 2021Q2

REPORT INFORMATION
  Report Type: Spontaneous
  Country: TW (occurrence: TW)
  Receive Date: 20210430
  Receipt Date: 20210430
  Transmission Date: 20210717
  Serious: Yes (Other)
  Sender: FDA-Public Use
  Company Number: TW-AMGEN-TWNSP2021062863

PATIENT
  Age: 60 Year
  Sex: Female

DRUGS (4)
  1. MVASI [Suspect]
     Active Substance: BEVACIZUMAB-AWWB
     Dosage: UNK
     Route: 065
     Dates: start: 202101
  2. VECTIBIX [Suspect]
     Active Substance: PANITUMUMAB
     Indication: PRODUCT USED FOR UNKNOWN INDICATION
     Dosage: UNK
     Route: 065
     Dates: start: 201902
  3. MVASI [Suspect]
     Active Substance: BEVACIZUMAB-AWWB
     Indication: RECTOSIGMOID CANCER
     Dosage: UNK
     Route: 065
     Dates: start: 202011
  4. FOLFOX 6 [Concomitant]
     Active Substance: FLUOROURACIL\LEUCOVORIN CALCIUM\OXALIPLATIN

REACTIONS (4)
  - Sepsis [Unknown]
  - Perirectal abscess [Unknown]
  - Decreased appetite [Unknown]
  - Fatigue [Unknown]
